FAERS Safety Report 6836263-2 (Version None)
Quarter: 2010Q3

REPORT INFORMATION
  Report Type: 
  Country: None (occurrence: None)
  Receive Date: 20100713
  Receipt Date: 20090901
  Transmission Date: 20110219
  Serious: No
  Sender: FDA-Public Use
  Company Number: US-TYCO HEALTHCARE/MALLINCKRODT-T200901632

PATIENT
  Sex: Female

DRUGS (8)
  1. OXYCODONE HCL [Suspect]
     Indication: PAIN
     Dosage: UNK
     Route: 048
     Dates: start: 20090101
  2. OXYCODONE HCL [Suspect]
     Dosage: UNK
     Route: 048
     Dates: start: 20080101, end: 20090101
  3. ESTROGEN NOS [Concomitant]
  4. BELLADONNA ALKALOIDS [Concomitant]
  5. ZOFRAN [Concomitant]
  6. FENTANYL [Concomitant]
  7. PHENAZOPYRIDINE HCL TAB [Concomitant]
  8. RANITIDINE [Concomitant]

REACTIONS (3)
  - DRUG INEFFECTIVE [None]
  - INCORRECT ROUTE OF DRUG ADMINISTRATION [None]
  - TREMOR [None]
